FAERS Safety Report 5306243-7 (Version None)
Quarter: 2007Q2

REPORT INFORMATION
  Report Type: 
  Country: None (occurrence: None)
  Receive Date: 20070424
  Receipt Date: 20070416
  Transmission Date: 20071010
  Serious: Yes (Other)
  Sender: FDA-Public Use
  Company Number: US-SHR-US-2007-013222

PATIENT
  Age: 50 Year
  Sex: Female

DRUGS (3)
  1. MAGNEVIST [Suspect]
     Dosage: 20 ML, 1 DOSE
     Route: 042
     Dates: start: 20040501, end: 20040501
  2. MAGNEVIST [Suspect]
     Dosage: 20 ML, 1 DOSE
     Route: 042
     Dates: start: 20050523, end: 20050523
  3. MAGNEVIST [Suspect]
     Dosage: 20 ML, 1 DOSE
     Route: 042
     Dates: start: 20051212, end: 20051212

REACTIONS (2)
  - NEPHROGENIC FIBROSING DERMOPATHY [None]
  - SERUM FERRITIN INCREASED [None]
